FAERS Safety Report 7736921-1 (Version None)
Quarter: 2011Q3

REPORT INFORMATION
  Report Type: 
  Country: None (occurrence: None)
  Receive Date: 20110902
  Receipt Date: 20110822
  Transmission Date: 20111222
  Serious: Yes (Other)
  Sender: FDA-Public Use
  Company Number: 2011MA012363

PATIENT
  Age: 67 Year
  Sex: Female

DRUGS (7)
  1. BISOPROLOL FUMARATE [Concomitant]
  2. FUROSEMIDE [Concomitant]
  3. PROPAFENONE HCL [Concomitant]
  4. POTASSIUM [Concomitant]
  5. CITALOPRAM HYDROBROMIDE [Suspect]
     Indication: DEPRESSION
     Dosage: 20 MG;QD
  6. HYDROCHLOROTHIAZIDE [Concomitant]
  7. LOSARTAN POTASSIUM [Concomitant]

REACTIONS (13)
  - PARKINSONISM [None]
  - GAIT DISTURBANCE [None]
  - MOVEMENT DISORDER [None]
  - TREMOR [None]
  - MINI MENTAL STATUS EXAMINATION ABNORMAL [None]
  - DYSPHONIA [None]
  - MASKED FACIES [None]
  - MUSCLE RIGIDITY [None]
  - BRADYKINESIA [None]
  - BRADYPHRENIA [None]
  - POSTURE ABNORMAL [None]
  - JOINT RANGE OF MOTION DECREASED [None]
  - HYPOKINESIA [None]
